FAERS Safety Report 14794123 (Version 3)
Quarter: 2018Q2

REPORT INFORMATION
  Report Type: Spontaneous
  Country: CA (occurrence: CA)
  Receive Date: 20180423
  Receipt Date: 20180508
  Transmission Date: 20180711
  Serious: Yes (Other)
  Sender: FDA-Public Use
  Company Number: CA-PFIZER INC-2018162656

PATIENT
  Age: 47 Year
  Sex: Male

DRUGS (13)
  1. ROGAINE [Concomitant]
     Active Substance: MINOXIDIL
     Dosage: 1 ML, UNK
  2. PMS-HYDROMORPHONE [Concomitant]
     Active Substance: HYDROMORPHONE HYDROCHLORIDE
     Indication: PAIN
     Dosage: 1 MG, EVERY 3 HOURS AS NEEDED
  3. PMS CELECOXIB [Concomitant]
     Dosage: 100 MG, 2X/DAY
  4. PMS-LOPERAMIDE [Concomitant]
     Indication: DIARRHOEA
     Dosage: 2 MG, 2X/DAY AS NEEDED
  5. AZATHIOPRINE TEVA [Concomitant]
     Active Substance: AZATHIOPRINE
     Dosage: 50MG X 4
     Dates: start: 20180404
  6. PMS-ZOPICLONE [Concomitant]
     Active Substance: ZOPICLONE
     Indication: INSOMNIA
     Dosage: 1/2 TO 1 7.5MG TAB, DAILY
  7. PMS CLONAZEPAM [Concomitant]
     Dosage: 1/2 TO 1 1MG TAB, 1X/DAY AS NEEDED
  8. ACT VENLAFAXINE XR [Concomitant]
     Dosage: 75 MG, 1X/DAY
  9. ACT BUPROPION XL [Concomitant]
     Dosage: 300 MG, 1X/DAY
  10. VIAGRA [Suspect]
     Active Substance: SILDENAFIL CITRATE
     Indication: ERECTILE DYSFUNCTION
     Dosage: 1/2 TO 1 TABLET OF 100MG BEFORE SEXUAL ACTIVITY
  11. COLESTID [Concomitant]
     Active Substance: COLESTIPOL HYDROCHLORIDE
     Dosage: 2 G, 2X/DAY
  12. MINT RISPERIDON [Concomitant]
     Dosage: 0.5 MG, 1X/DAY AT BEDTIME
  13. VITAMIN B12 [Concomitant]
     Active Substance: CYANOCOBALAMIN
     Dosage: 250 MG, 1X/DAY
     Route: 048

REACTIONS (1)
  - Vein rupture [Unknown]

NARRATIVE: CASE EVENT DATE: 20180413
